FAERS Safety Report 9931691 (Version 1)
Quarter: 2014Q1

REPORT INFORMATION
  Report Type: Spontaneous
  Country: US (occurrence: None)
  Receive Date: 20140224
  Receipt Date: 20140224
  Transmission Date: 20141002
  Serious: Yes (Death)
  Sender: FDA-Public Use
  Company Number: NL01PV14.35222

PATIENT
  Age: 64 Year
  Sex: Female

DRUGS (4)
  1. ZOLPIDEM TABLETS [Suspect]
     Route: 048
  2. IMIPRAMINE (IMIPRAMINE) (IMIPRAMINE) [Suspect]
     Route: 048
  3. ATROPINE W/DIPHENOXYLATE [Suspect]
     Route: 048
  4. ACETAMINOPHEN W/HYDROCODONE (HYDROCODONE, PARACETAMOL) [Suspect]

REACTIONS (2)
  - Completed suicide [None]
  - Exposure via ingestion [None]
